FAERS Safety Report 4348702-X (Version None)
Quarter: 2004Q2

REPORT INFORMATION
  Report Type: 
  Country: None (occurrence: None)
  Receive Date: 20040423
  Receipt Date: 20040409
  Transmission Date: 20050107
  Serious: Yes (Other)
  Sender: FDA-Public Use
  Company Number: US013006

PATIENT
  Age: 8 Month
  Sex: Female
  Weight: 8.1647 kg

DRUGS (1)
  1. ACTIQ [Suspect]
     Dates: start: 20040409, end: 20040409

REACTIONS (1)
  - ACCIDENTAL EXPOSURE [None]
